FAERS Safety Report 8114744-1 (Version None)
Quarter: 2012Q1

REPORT INFORMATION
  Report Type: 
  Country: None (occurrence: None)
  Receive Date: 20120206
  Receipt Date: 20120202
  Transmission Date: 20120608
  Serious: Yes (Hospitalization, Other)
  Sender: FDA-Public Use
  Company Number: US-PFIZER INC-2012017126

PATIENT
  Sex: Female
  Weight: 88.4 kg

DRUGS (2)
  1. LYRICA [Suspect]
     Indication: NEURALGIA
  2. LYRICA [Suspect]
     Indication: MUSCLE SPASMS
     Dosage: UNK
     Dates: start: 20080101

REACTIONS (9)
  - DRUG DOSE OMISSION [None]
  - HERNIA REPAIR [None]
  - INTERVERTEBRAL DISC OPERATION [None]
  - SPINAL FUSION SURGERY [None]
  - SPINAL DISORDER [None]
  - SPINAL LAMINECTOMY [None]
  - CHRONIC OBSTRUCTIVE PULMONARY DISEASE [None]
  - WEIGHT INCREASED [None]
  - LUNG DISORDER [None]
